FAERS Safety Report 8582414-1 (Version None)
Quarter: 2012Q3

REPORT INFORMATION
  Report Type: 
  Country: None (occurrence: None)
  Receive Date: 20120809
  Receipt Date: 20120803
  Transmission Date: 20120928
  Serious: Yes (Other)
  Sender: FDA-Public Use
  Company Number: GB-GLAXOSMITHKLINE-B0811321A

PATIENT
  Age: 68 Year
  Sex: Female

DRUGS (9)
  1. ACYCLOVIR [Suspect]
     Indication: ORAL HERPES
     Route: 048
     Dates: start: 20120315, end: 20120322
  2. OMEPRAZOLE [Suspect]
     Indication: GASTRIC DISORDER
     Route: 048
     Dates: start: 20120315
  3. FLUCONAZOLE [Suspect]
     Indication: CANDIDIASIS
     Route: 048
     Dates: start: 20120315, end: 20120322
  4. DEXAMETHASONE SODIUM PHOSPHATE [Concomitant]
     Indication: STEROID THERAPY
     Route: 048
     Dates: start: 20120315
  5. OXYCODONE HCL [Concomitant]
     Indication: PAIN
     Route: 048
  6. VELCADE [Suspect]
     Indication: CHEMOTHERAPY
     Route: 042
     Dates: start: 20120315
  7. CALCEOS [Concomitant]
     Indication: MINERAL SUPPLEMENTATION
     Route: 048
  8. MOVIPREP [Concomitant]
     Indication: CONSTIPATION
     Route: 065
  9. ALLOPURINOL [Concomitant]
     Indication: GOUT
     Route: 048
     Dates: start: 20120315

REACTIONS (1)
  - LIVER FUNCTION TEST ABNORMAL [None]
